FAERS Safety Report 10159023 (Version 1)
Quarter: 2014Q2

REPORT INFORMATION
  Report Type: Spontaneous
  Country: US (occurrence: US)
  Receive Date: 20140508
  Receipt Date: 20140508
  Transmission Date: 20141212
  Serious: No
  Sender: FDA-Public Use
  Company Number: US-BIOGENIDEC-2014BI040253

PATIENT
  Age: 79 Year
  Sex: Female

DRUGS (3)
  1. TECFIDERA [Suspect]
     Indication: MULTIPLE SCLEROSIS
     Route: 048
     Dates: start: 20140206
  2. AMLODIPINE BESYLATE [Concomitant]
  3. CIPROFLOXACIN HCL [Concomitant]

REACTIONS (2)
  - Vertigo [Unknown]
  - Urinary incontinence [Unknown]
